FAERS Safety Report 19806002 (Version 1)
Quarter: 2021Q3

REPORT INFORMATION
  Report Type: Spontaneous
  Country: GB (occurrence: GB)
  Receive Date: 20210909
  Receipt Date: 20210909
  Transmission Date: 20211014
  Serious: Yes (Hospitalization, Other)
  Sender: FDA-Public Use
  Company Number: GB-AMGEN-GBRSP2021134444

PATIENT

DRUGS (1)
  1. PROLIA [Suspect]
     Active Substance: DENOSUMAB
     Indication: OSTEOPOROSIS
     Dosage: UNK
     Route: 065

REACTIONS (12)
  - Pollakiuria [Unknown]
  - Hypocalcaemia [Unknown]
  - Lower respiratory tract infection [Unknown]
  - Taste disorder [Unknown]
  - Micturition urgency [Unknown]
  - Diarrhoea [Unknown]
  - Pruritus [Unknown]
  - Eczema [Unknown]
  - Urinary tract infection [Unknown]
  - Arthritis [Unknown]
  - Urine odour abnormal [Unknown]
  - Dysuria [Unknown]
